FAERS Safety Report 8476467-9 (Version None)
Quarter: 2012Q2

REPORT INFORMATION
  Report Type: 
  Country: None (occurrence: None)
  Receive Date: 20120615
  Receipt Date: 20120608
  Transmission Date: 20120825
  Serious: Yes (Hospitalization)
  Sender: FDA-Public Use
  Company Number: WAES 1111USA03254

PATIENT
  Age: 78 Year
  Sex: Male

DRUGS (8)
  1. CAPTOPRIL AND HYDROCHLOROTHIAZIDE [Concomitant]
  2. MODOPAR [Concomitant]
  3. OMEPRAZOLE [Concomitant]
  4. DECADRON [Suspect]
     Indication: PRODUCT USED FOR UNKNOWN INDICATION
     Dosage: 20 MG, DAILY, 375 MG/TID, PO
     Route: 048
     Dates: start: 20110225
  5. TAB ENZASTAURIN HYDROCHLORIDE [Suspect]
     Indication: MULTIPLE MYELOMA
     Dosage: 375;250 MG, TID,BID, PO
     Route: 048
     Dates: start: 20090423
  6. TAB ENZASTAURIN HYDROCHLORIDE [Suspect]
     Indication: MULTIPLE MYELOMA
     Dosage: 375;250 MG, TID,BID, PO
     Route: 048
     Dates: start: 20090422, end: 20090422
  7. STALEVO 100 [Concomitant]
  8. DOMPERIDONE [Concomitant]

REACTIONS (7)
  - TOXICITY TO VARIOUS AGENTS [None]
  - MUSCULAR WEAKNESS [None]
  - GENERAL PHYSICAL HEALTH DETERIORATION [None]
  - DYSPNOEA [None]
  - DIARRHOEA [None]
  - ASTHENIA [None]
  - COUGH [None]
